FAERS Safety Report 24289024 (Version 3)
Quarter: 2024Q3

REPORT INFORMATION
  Report Type: Report from Study
  Country: KR (occurrence: KR)
  Receive Date: 20240906
  Receipt Date: 20240928
  Transmission Date: 20241016
  Serious: Yes (Hospitalization)
  Sender: ABBVIE
  Company Number: KR-ABBVIE-5905706

PATIENT
  Age: 41 Year
  Sex: Male
  Weight: 70 kg

DRUGS (2)
  1. RINVOQ [Suspect]
     Active Substance: UPADACITINIB
     Indication: Dermatitis atopic
     Route: 048
     Dates: start: 20230821
  2. TITIBE [Concomitant]
     Indication: Dermatitis atopic
     Dosage: UNIT DOSE : 1 APPLICATION ?0.25% 10G
     Route: 061
     Dates: start: 20231204

REACTIONS (1)
  - Ankle fracture [Recovered/Resolved]

NARRATIVE: CASE EVENT DATE: 20231018
